FAERS Safety Report 6092186-0 (Version None)
Quarter: 2009Q1

REPORT INFORMATION
  Report Type: 
  Country: None (occurrence: None)
  Receive Date: 20090223
  Receipt Date: 20090223
  Transmission Date: 20090719
  Serious: Yes (Other)
  Sender: FDA-Public Use
  Company Number: None

PATIENT
  Sex: Female
  Weight: 74.3899 kg

DRUGS (1)
  1. FACTIVE [Suspect]
     Indication: SINUSITIS
     Dates: start: 20090210, end: 20090215

REACTIONS (1)
  - RASH [None]
